FAERS Safety Report 6722542-6 (Version None)
Quarter: 2010Q2

REPORT INFORMATION
  Report Type: 
  Country: None (occurrence: None)
  Receive Date: 20100506
  Receipt Date: 20090922
  Transmission Date: 20101027
  Serious: Yes (Life-Threatening, Hospitalization, Disabling)
  Sender: FDA-Public Use
  Company Number: WAES 0909USA03550

PATIENT
  Sex: Female

DRUGS (1)
  1. EMEND [Suspect]
     Dosage: IV
     Route: 042
     Dates: start: 20090909

REACTIONS (2)
  - DYSPNOEA [None]
  - FLUSHING [None]
